FAERS Safety Report 4641929-9 (Version None)
Quarter: 2005Q2

REPORT INFORMATION
  Report Type: 
  Country: None (occurrence: None)
  Receive Date: 20050421
  Receipt Date: 20050406
  Transmission Date: 20051028
  Serious: Yes (Hospitalization)
  Sender: FDA-Public Use
  Company Number: TPA2004A01474

PATIENT
  Age: 58 Year
  Sex: Female
  Weight: 76.2043 kg

DRUGS (15)
  1. PIOGLITAZONE HCL [Suspect]
     Indication: GLUCOSE TOLERANCE IMPAIRED
     Dosage: 1 IN 1 D, PER ORAL
     Route: 048
     Dates: start: 20040331
  2. SYNTHROID [Concomitant]
  3. ALPRAZOLAM [Concomitant]
  4. BACLOFEN [Concomitant]
  5. CLONAZEPAM [Concomitant]
  6. PROZAC [Concomitant]
  7. PROMETRIUM [Concomitant]
  8. GYNEDRON (BORIC ACID) [Concomitant]
  9. IRON SUPPLEMENT (IRON) [Concomitant]
  10. SENNA (SENNA) [Concomitant]
  11. SEROQUEL [Concomitant]
  12. DALMANE [Concomitant]
  13. ESTRADIOL CIPIONATE (ESTRADIOL CIPIONATE) [Concomitant]
  14. TESTOSTERONE CIPIONATE (TESTOSTERONE CIPIONATE) [Concomitant]
  15. PROGESTERONE [Concomitant]

REACTIONS (2)
  - LUMBAR RADICULOPATHY [None]
  - LUMBAR SPINAL STENOSIS [None]
